FAERS Safety Report 6608461-4 (Version None)
Quarter: 2010Q1

REPORT INFORMATION
  Report Type: 
  Country: None (occurrence: None)
  Receive Date: 20100226
  Receipt Date: 20100226
  Transmission Date: 20100710
  Serious: No
  Sender: FDA-Public Use
  Company Number: None

PATIENT
  Age: 79 Year
  Sex: Male
  Weight: 81.6475 kg

DRUGS (15)
  1. LITHIUM CARBONATE [Suspect]
  2. IBUPROFEN [Concomitant]
  3. ARICEPT [Concomitant]
  4. TRIAMTERENE AND HYDROCHLOROTHIAZIDE [Suspect]
  5. NAMENDA [Concomitant]
  6. ATENOLOL [Concomitant]
  7. DIGOXIN [Concomitant]
  8. LOFIBRA [Concomitant]
  9. ASPIRIN [Concomitant]
  10. MULTI-VITAMINS [Concomitant]
  11. WARFARIN SODIUM [Concomitant]
  12. VERAPAMIL [Concomitant]
  13. MIRTAZAPINE [Concomitant]
  14. PRAVASTATIN [Concomitant]
  15. QUETIAPINE [Concomitant]

REACTIONS (2)
  - GRAND MAL CONVULSION [None]
  - THERAPEUTIC AGENT TOXICITY [None]
